FAERS Safety Report 17656270 (Version 1)
Quarter: 2020Q2

REPORT INFORMATION
  Report Type: Report from Study
  Country: DE (occurrence: DE)
  Receive Date: 20200410
  Receipt Date: 20200410
  Transmission Date: 20200713
  Serious: Yes (Hospitalization, Other)
  Sender: FDA-Public Use
  Company Number: DE-TEVA-2020-DE-1221954

PATIENT
  Age: 45 Year
  Sex: Female
  Weight: 78 kg

DRUGS (17)
  1. PREDNISOLON 30 MG [Suspect]
     Active Substance: PREDNISOLONE
     Dosage: 30 MG
     Route: 065
  2. VILANTEROL [Concomitant]
     Active Substance: VILANTEROL TRIFENATATE
     Dosage: 200/25
  3. FOLSAN [Concomitant]
     Active Substance: FOLIC ACID
     Dosage: 5MG 1-0-0
  4. SALBUTAMOL [Concomitant]
     Active Substance: ALBUTEROL
     Dosage: 0.1 SPRAY
  5. KALINOR [Concomitant]
     Dosage: 1-0-1, 1 DOSAGE FORMS
  6. METOPROLOL. [Concomitant]
     Active Substance: METOPROLOL
     Dosage: METOPROLOL 47.5 1-0-0, 47.5 MG
  7. FLUTICASON FUORAT [Concomitant]
  8. DEKRISTOL [Concomitant]
     Active Substance: CHOLECALCIFEROL
     Dosage: 20000 IE
  9. SIMVASTATIN. [Concomitant]
     Active Substance: SIMVASTATIN
     Dosage: 40 MG
  10. REPATHA [Concomitant]
     Active Substance: EVOLOCUMAB
     Dosage: 140 MG
  11. ENTRESTO [Concomitant]
     Active Substance: SACUBITRIL\VALSARTAN
     Dosage: 24/26
  12. METHOTREXATE 20MG [Suspect]
     Active Substance: METHOTREXATE
     Dosage: 20 MG
     Route: 065
  13. MIRENA [Suspect]
     Active Substance: LEVONORGESTREL
     Indication: INTRAUTERINE CONTRACEPTION
     Route: 065
     Dates: start: 2000
  14. ELIQUIS [Suspect]
     Active Substance: APIXABAN
     Dosage: 2X5MG
     Route: 065
     Dates: start: 20190612
  15. EPLERENON [Concomitant]
     Active Substance: EPLERENONE
     Dosage: 25MG 1-0-0
  16. LEVOTHYROXIN [Concomitant]
     Active Substance: LEVOTHYROXINE
     Dosage: 25
  17. PANTOPRAZOLE [Concomitant]
     Active Substance: PANTOPRAZOLE
     Dosage: 40MG 1-0-0

REACTIONS (1)
  - Subclavian vein thrombosis [Unknown]

NARRATIVE: CASE EVENT DATE: 20190706
